FAERS Safety Report 18971791 (Version 2)
Quarter: 2021Q3

REPORT INFORMATION
  Report Type: Spontaneous
  Country: JP (occurrence: JP)
  Receive Date: 20210305
  Receipt Date: 20210722
  Transmission Date: 20211014
  Serious: Yes (Hospitalization, Other)
  Sender: FDA-Public Use
  Company Number: JP-ROCHE-2783679

PATIENT
  Sex: Female

DRUGS (3)
  1. TECENTRIQ [Suspect]
     Active Substance: ATEZOLIZUMAB
     Route: 041
     Dates: start: 2021
  2. TECENTRIQ [Suspect]
     Active Substance: ATEZOLIZUMAB
     Indication: TRIPLE NEGATIVE BREAST CANCER
     Dosage: THREE WEEKS ON, ONE WEEK OFF?MOST RECENT DOSE RECEIVED PRIOR TO THE EVENT ONSET ON 29/JAN/2021
     Route: 041
     Dates: start: 20210115
  3. ABRAXANE [Concomitant]
     Active Substance: PACLITAXEL
     Indication: TRIPLE NEGATIVE BREAST CANCER
     Dosage: WEEKLY FOR 3 WEEKS SUBSEQUENTLY 1?WEEK?OFF SCHEDULE
     Route: 041

REACTIONS (2)
  - Pulmonary artery thrombosis [Recovered/Resolved]
  - Bladder cancer [Unknown]

NARRATIVE: CASE EVENT DATE: 20210212
